FAERS Safety Report 5946022-0 (Version None)
Quarter: 2008Q4

REPORT INFORMATION
  Report Type: 
  Country: None (occurrence: None)
  Receive Date: 20081106
  Receipt Date: 20081106
  Transmission Date: 20090506
  Serious: Yes (Other)
  Sender: FDA-Public Use
  Company Number: None

PATIENT
  Age: 54 Year
  Sex: Female

DRUGS (1)
  1. SULFAMETHOXAZOLE AND TRIMETHOPRIM [Suspect]
     Dosage: 1 TAB BID PO
     Route: 048
     Dates: start: 20081104, end: 20081104

REACTIONS (5)
  - ANGIOEDEMA [None]
  - PRURITUS GENERALISED [None]
  - RESPIRATORY DEPRESSION [None]
  - THROAT IRRITATION [None]
  - URTICARIA [None]
